FAERS Safety Report 7807326-X (Version None)
Quarter: 2011Q4

REPORT INFORMATION
  Report Type: 
  Country: None (occurrence: None)
  Receive Date: 20111011
  Receipt Date: 20111006
  Transmission Date: 20120403
  Serious: Yes (Hospitalization)
  Sender: FDA-Public Use
  Company Number: US-CEPHALON-2011005278

PATIENT
  Sex: Male
  Weight: 57 kg

DRUGS (1)
  1. FENTORA [Suspect]
     Indication: GASTROINTESTINAL PAIN
     Route: 002
     Dates: start: 20101001

REACTIONS (6)
  - COMPLICATIONS OF TRANSPLANT SURGERY [None]
  - THROMBOSIS [None]
  - ORGAN TRANSPLANT [None]
  - INFECTION [None]
  - ASTHENIA [None]
  - FISTULA DISCHARGE [None]
